FAERS Safety Report 9418350 (Version 1)
Quarter: 2013Q3

REPORT INFORMATION
  Report Type: Spontaneous
  Country: US (occurrence: US)
  Receive Date: 20130725
  Receipt Date: 20130725
  Transmission Date: 20140515
  Serious: No
  Sender: FDA-Public Use
  Company Number: US-009507513-1307USA010772

PATIENT
  Sex: Female

DRUGS (4)
  1. EMEND [Suspect]
     Indication: BREAST CANCER
     Dosage: 150MG SINGLE DOSE
     Route: 042
     Dates: start: 20130710, end: 20130710
  2. ALOXI [Concomitant]
  3. BENADRYL [Concomitant]
  4. PEPCID [Concomitant]
     Route: 048

REACTIONS (4)
  - Tachycardia [Unknown]
  - Chest discomfort [Unknown]
  - Dyspnoea [Unknown]
  - Flushing [Unknown]
